FAERS Safety Report 23335009 (Version 1)
Quarter: 2023Q4

REPORT INFORMATION
  Report Type: Spontaneous
  Country: ES (occurrence: None)
  Receive Date: 20231225
  Receipt Date: 20231225
  Transmission Date: 20240110
  Serious: Yes (Other)
  Sender: FDA-Public Use
  Company Number: 2023A287828

PATIENT
  Age: 65 Year
  Sex: Male

DRUGS (6)
  1. XIGDUO XR [Suspect]
     Active Substance: DAPAGLIFLOZIN PROPANEDIOL\METFORMIN HYDROCHLORIDE
     Indication: Type 2 diabetes mellitus
     Dosage: 5 MG/1000 MG
     Route: 048
     Dates: start: 20211111
  2. GLIMEPIRIDA NORMON [Concomitant]
     Route: 048
     Dates: start: 20230331
  3. ASPIRIN [Concomitant]
     Active Substance: ASPIRIN
     Route: 048
     Dates: start: 20211124
  4. HIDROFEROL 0 [Concomitant]
     Route: 048
     Dates: start: 20211111
  5. SEROQUEL [Concomitant]
     Active Substance: QUETIAPINE FUMARATE
     Route: 048
     Dates: start: 20211111
  6. ATORVASTATIN [Concomitant]
     Active Substance: ATORVASTATIN
     Route: 048
     Dates: start: 20211124

REACTIONS (3)
  - Wound [Recovering/Resolving]
  - Penile erythema [Recovering/Resolving]
  - Paraphimosis [Recovering/Resolving]

NARRATIVE: CASE EVENT DATE: 20231122
